FAERS Safety Report 16099459 (Version 2)
Quarter: 2019Q2

REPORT INFORMATION
  Report Type: Report from Study
  Country: US (occurrence: US)
  Receive Date: 20190321
  Receipt Date: 20190619
  Transmission Date: 20190711
  Serious: Yes (Hospitalization)
  Sender: FDA-Public Use
  Company Number: US-ROCHE-2285947

PATIENT
  Age: 59 Year
  Sex: Female
  Weight: 67.1 kg

DRUGS (11)
  1. LIDOCAINE. [Concomitant]
     Active Substance: LIDOCAINE
  2. AMLODIPINE [Concomitant]
     Active Substance: AMLODIPINE BESYLATE
  3. BENADRYL ALLERGY [Concomitant]
     Active Substance: DIPHENHYDRAMINE HYDROCHLORIDE
  4. TYLENOL [Concomitant]
     Active Substance: ACETAMINOPHEN
  5. METOPROLOL. [Concomitant]
     Active Substance: METOPROLOL
  6. FOLIC ACID. [Concomitant]
     Active Substance: FOLIC ACID
  7. ALEVE [Concomitant]
     Active Substance: NAPROXEN SODIUM
  8. ATEZOLIZUMAB. [Suspect]
     Active Substance: ATEZOLIZUMAB
     Indication: COLORECTAL CANCER
     Route: 042
     Dates: start: 20190227
  9. JARDIANCE [Concomitant]
     Active Substance: EMPAGLIFLOZIN
  10. CLARITINE [Concomitant]
     Active Substance: LORATADINE
  11. CABOZANTINIB [Suspect]
     Active Substance: CABOZANTINIB
     Indication: COLORECTAL CANCER
     Dosage: MOST RECENT DOSE OF CABOZANTINIB PRIOR TO AE ONSET: 11/MAR/2019.
     Route: 065
     Dates: start: 20190227

REACTIONS (1)
  - Acute kidney injury [Not Recovered/Not Resolved]

NARRATIVE: CASE EVENT DATE: 20190312
